FAERS Safety Report 17241299 (Version 1)
Quarter: 2020Q1

REPORT INFORMATION
  Report Type: Spontaneous
  Country: US (occurrence: US)
  Receive Date: 20200107
  Receipt Date: 20200107
  Transmission Date: 20200409
  Serious: No
  Sender: FDA-Public Use
  Company Number: US-BAYER-2020-002502

PATIENT
  Age: 84 Year
  Sex: Female

DRUGS (2)
  1. MOVELAX [Concomitant]
     Active Substance: LACTULOSE
     Dosage: UNK
  2. MIRALAX [Suspect]
     Active Substance: POLYETHYLENE GLYCOL 3350
     Indication: GASTROINTESTINAL DISORDER
     Dosage: HALF A CAP , UNK
     Route: 048

REACTIONS (2)
  - Incorrect product administration duration [Unknown]
  - Incorrect dose administered [Unknown]
